FAERS Safety Report 24057217 (Version 4)
Quarter: 2024Q3

REPORT INFORMATION
  Report Type: Spontaneous
  Country: CA (occurrence: CA)
  Receive Date: 20240706
  Receipt Date: 20240928
  Transmission Date: 20241016
  Serious: Yes (Other)
  Sender: CELLTRION
  Company Number: CA-PFIZER INC-202300396681

PATIENT

DRUGS (30)
  1. INFLECTRA [Suspect]
     Active Substance: INFLIXIMAB-DYYB
     Indication: Crohn^s disease
     Dosage: 225 MG, Q 0 WEEK DOSE
     Route: 042
     Dates: start: 20190308, end: 20190308
  2. INFLECTRA [Suspect]
     Active Substance: INFLIXIMAB-DYYB
     Dosage: 5 MG/KG, Q 2 WEEK DOSE
     Route: 042
     Dates: start: 20190322, end: 20190322
  3. INFLECTRA [Suspect]
     Active Substance: INFLIXIMAB-DYYB
     Dosage: 5 MG/KG, Q 6 WEEK DOSE
     Route: 042
     Dates: start: 20190418, end: 20190418
  4. INFLECTRA [Suspect]
     Active Substance: INFLIXIMAB-DYYB
     Dosage: 5 MG/KG, EVERY 8 WEEKS
     Route: 042
     Dates: start: 20190614, end: 20190614
  5. INFLECTRA [Suspect]
     Active Substance: INFLIXIMAB-DYYB
     Dosage: 5 MG/KG, EVERY 4 WEEKS
     Route: 042
     Dates: start: 20190809, end: 20200629
  6. INFLECTRA [Suspect]
     Active Substance: INFLIXIMAB-DYYB
     Dosage: 260 MG, EVERY 4 WEEKS
     Route: 042
     Dates: start: 20200727, end: 20220603
  7. INFLECTRA [Suspect]
     Active Substance: INFLIXIMAB-DYYB
     Dosage: 5 MG/KG, EVERY 4 WEEKS
     Route: 042
     Dates: start: 20220704
  8. INFLECTRA [Suspect]
     Active Substance: INFLIXIMAB-DYYB
     Dosage: 5 MG/KG, EVERY 4 WEEKS
     Route: 042
     Dates: start: 20231117
  9. INFLECTRA [Suspect]
     Active Substance: INFLIXIMAB-DYYB
     Dosage: 5 MG/KG (253 MG), EVERY 4 WEEKS
     Route: 042
     Dates: start: 20231218
  10. INFLECTRA [Suspect]
     Active Substance: INFLIXIMAB-DYYB
     Dosage: 5 MG/KG (250 MG), EVERY 4 WEEKS
     Route: 042
     Dates: start: 20240112
  11. INFLECTRA [Suspect]
     Active Substance: INFLIXIMAB-DYYB
     Dosage: 5 MG/KG, EVERY 4 WEEKS
     Route: 042
     Dates: start: 20240209
  12. INFLECTRA [Suspect]
     Active Substance: INFLIXIMAB-DYYB
     Dosage: 5 MG/KG (250 MG), EVERY 4 WEEKS
     Route: 042
     Dates: start: 20240308
  13. INFLECTRA [Suspect]
     Active Substance: INFLIXIMAB-DYYB
     Dosage: 5 MG/KG (245 MG), EVERY 4 WEEKS
     Route: 042
     Dates: start: 20240405
  14. INFLECTRA [Suspect]
     Active Substance: INFLIXIMAB-DYYB
     Dosage: 5 MG/KG, EVERY 4 WEEKS
     Route: 042
     Dates: start: 20240531
  15. INFLECTRA [Suspect]
     Active Substance: INFLIXIMAB-DYYB
     Dosage: 250 MG, EVERY 4 WEEKS
     Route: 042
     Dates: start: 20240628
  16. INFLECTRA [Suspect]
     Active Substance: INFLIXIMAB-DYYB
     Dosage: 248 MG (5 MG/KG), EVERY 4 WEEKS
     Route: 042
     Dates: start: 20240726
  17. INFLECTRA [Suspect]
     Active Substance: INFLIXIMAB-DYYB
     Dosage: 250 MG, 4 WEEKS (5 MG/KG, EVERY 4 WEEKS)
     Route: 042
     Dates: start: 20240823
  18. COLCHICINE [Concomitant]
     Active Substance: COLCHICINE
     Dosage: 0.6 MG (1 DF) FREQUENCY UNKNOWN
     Route: 048
  19. CYMBALTA [Concomitant]
     Active Substance: DULOXETINE HYDROCHLORIDE
     Dosage: 30 MG, 1X/DAY (FOR 2 WEEKS THEN TAKE 2 TABLETS QD)
  20. FLAGYL [Concomitant]
     Active Substance: METRONIDAZOLE\METRONIDAZOLE HYDROCHLORIDE
     Dosage: 1 DF, ALTERNATE DAY (EVERY 2 DAYS) (DOSAGE INFORMATION NOT AVAILABLE) FOR 3 WEEKS
     Route: 048
     Dates: start: 201910
  21. FLOVENT [Concomitant]
     Active Substance: FLUTICASONE PROPIONATE
     Dosage: 1 DF AS NEEDED, PRN INHALATION
     Route: 055
  22. FOLIC ACID [Concomitant]
     Active Substance: FOLIC ACID
     Dosage: 5 MG, UNKNOWN FREQUENCY
  23. METHOTREXATE [Concomitant]
     Active Substance: METHOTREXATE
     Dosage: 12.5 MG (1 DF) FREQUENCY UNKNOWN
  24. METHOTREXATE [Concomitant]
     Active Substance: METHOTREXATE
     Dosage: 7.5 MG (1 DF) FREQUENCY UNKNOWN
     Route: 048
  25. MESALAMINE [Concomitant]
     Active Substance: MESALAMINE
     Dosage: 1 DF 2 SPRAY (UNKNOWN FREQUENCY)
  26. PANTOPRAZOLE SODIUM [Concomitant]
     Active Substance: PANTOPRAZOLE SODIUM
     Dosage: 40 MG, FREQUENCY UNKNOWN
     Route: 048
  27. ALBUTEROL [Concomitant]
     Active Substance: ALBUTEROL
     Dosage: 1 DF AS NEEED, PRN INHALATION
     Route: 055
  28. MORPHINE SULFATE [Concomitant]
     Active Substance: MORPHINE SULFATE
     Indication: Pain
     Dosage: 1 DF, AS NEEDED (DOSAGE INFORMATION NOT AVAILABLE, PRN)
     Route: 048
     Dates: start: 201910
  29. TRAMADOL [Concomitant]
     Active Substance: TRAMADOL
     Indication: Pain
     Dosage: 50 MG, EVERY 4 HRS (1 TO 2 TABLETS, (EVERY 4 HOUR))
     Route: 048
     Dates: start: 201907
  30. CHOLECALCIFEROL [Concomitant]
     Active Substance: CHOLECALCIFEROL
     Dosage: 50000 IU, UNKNOWN FREQUENCY
     Dates: start: 202109

REACTIONS (2)
  - Condition aggravated [Not Recovered/Not Resolved]
  - Arthralgia [Recovered/Resolved]

NARRATIVE: CASE EVENT DATE: 20231117
